FAERS Safety Report 19623946 (Version 2)
Quarter: 2021Q3

REPORT INFORMATION
  Report Type: Report from Study
  Country: US (occurrence: US)
  Receive Date: 20210728
  Receipt Date: 20210802
  Transmission Date: 20211014
  Serious: No
  Sender: FDA-Public Use
  Company Number: NVSC2021US150675

PATIENT
  Sex: Female

DRUGS (1)
  1. AFINITOR [Suspect]
     Active Substance: EVEROLIMUS
     Indication: PRODUCT USED FOR UNKNOWN INDICATION
     Dosage: UNKNOWN
     Route: 065
     Dates: start: 20210412, end: 20210601

REACTIONS (8)
  - Depression [Unknown]
  - Joint swelling [Unknown]
  - Rash [Unknown]
  - Peripheral swelling [Unknown]
  - Hot flush [Unknown]
  - Pruritus [Unknown]
  - Asthenia [Unknown]
  - Decreased appetite [Unknown]
